FAERS Safety Report 10922901 (Version 2)
Quarter: 2015Q2

REPORT INFORMATION
  Report Type: Spontaneous
  Country: US (occurrence: US)
  Receive Date: 20150317
  Receipt Date: 20150429
  Transmission Date: 20150821
  Serious: No
  Sender: FDA-Public Use
  Company Number: US-009507513-1503USA006825

PATIENT
  Age: 17 Year
  Sex: Male
  Weight: 79.37 kg

DRUGS (2)
  1. ALLEGRA [Concomitant]
     Active Substance: FEXOFENADINE HYDROCHLORIDE
  2. GRASTEK [Suspect]
     Active Substance: PHLEUM PRATENSE POLLEN
     Indication: RHINITIS ALLERGIC
     Dosage: 2800 BAU/ONCE A DAY
     Route: 060
     Dates: start: 20150210, end: 20150304

REACTIONS (1)
  - Nodule [Recovered/Resolved]

NARRATIVE: CASE EVENT DATE: 20150224
